FAERS Safety Report 17961896 (Version 1)
Quarter: 2020Q2

REPORT INFORMATION
  Report Type: Spontaneous
  Country: US (occurrence: US)
  Receive Date: 20200629
  Receipt Date: 20200629
  Transmission Date: 20200714
  Serious: No
  Sender: FDA-Public Use
  Company Number: None

PATIENT
  Age: 61 Year
  Sex: Male

DRUGS (1)
  1. PIOGLITAZONE (PIOGLITAZONE HCL 15MG TAB) [Suspect]
     Active Substance: PIOGLITAZONE
     Indication: DIABETES MELLITUS
     Route: 048
     Dates: start: 20190409, end: 20190711

REACTIONS (3)
  - Glycosylated haemoglobin increased [None]
  - Oedema peripheral [None]
  - Joint swelling [None]

NARRATIVE: CASE EVENT DATE: 20190711
